FAERS Safety Report 9979540 (Version 1)
Quarter: 2014Q1

REPORT INFORMATION
  Report Type: Report from Study
  Country: US (occurrence: US)
  Receive Date: 20140306
  Receipt Date: 20140306
  Transmission Date: 20141002
  Serious: No
  Sender: FDA-Public Use
  Company Number: US-ABBVIE-13P-163-1171112-00

PATIENT
  Age: 45 Year
  Sex: Female

DRUGS (5)
  1. HUMIRA [Suspect]
     Indication: PSORIASIS
     Dates: start: 20131109, end: 20131109
  2. HUMIRA [Suspect]
     Dates: start: 20131116
  3. ARMOUR THYROID [Concomitant]
     Indication: HYPOTHYROIDISM
  4. ARTHROTEC [Concomitant]
     Indication: PAIN
  5. BUTALBITAL, ACETAMINOPHEN + CAFFEINE [Concomitant]
     Indication: HEADACHE

REACTIONS (1)
  - Injection site pain [Recovered/Resolved]
